FAERS Safety Report 11046799 (Version 2)
Quarter: 2015Q3

REPORT INFORMATION
  Report Type: Report from Study
  Country: GB (occurrence: GB)
  Receive Date: 20150420
  Receipt Date: 20150727
  Transmission Date: 20151125
  Serious: Yes (Other)
  Sender: FDA-Public Use
  Company Number: GB-ROCHE-1565719

PATIENT
  Sex: Male
  Weight: 102 kg

DRUGS (1)
  1. TOCILIZUMAB [Suspect]
     Active Substance: TOCILIZUMAB
     Indication: RHEUMATOID ARTHRITIS
     Dosage: DATE OF LAST PRIOR TO SAE 3/MAR/2015
     Route: 065
     Dates: start: 20130326

REACTIONS (1)
  - Rectal cancer [Not Recovered/Not Resolved]
